FAERS Safety Report 18927523 (Version 1)
Quarter: 2021Q1

REPORT INFORMATION
  Report Type: Spontaneous
  Country: US (occurrence: US)
  Receive Date: 20210222
  Receipt Date: 20210222
  Transmission Date: 20210420
  Serious: Yes (Hospitalization)
  Sender: FDA-Public Use
  Company Number: None

PATIENT
  Age: 72 Year
  Sex: Male

DRUGS (1)
  1. NIVOLUMAB (NIVOLUMAB 10MG/ML INJ, SOLN) [Suspect]
     Active Substance: NIVOLUMAB
     Indication: NEOPLASM MALIGNANT
     Route: 042
     Dates: start: 20201005, end: 20201130

REACTIONS (2)
  - Varices oesophageal [None]
  - Colitis [None]

NARRATIVE: CASE EVENT DATE: 20201130
